FAERS Safety Report 7109273-8 (Version None)
Quarter: 2010Q4

REPORT INFORMATION
  Report Type: 
  Country: None (occurrence: None)
  Receive Date: 20101117
  Receipt Date: 20101112
  Transmission Date: 20110411
  Serious: Yes (Hospitalization)
  Sender: FDA-Public Use
  Company Number: GB-AMGEN-GBRNI2010004392

PATIENT
  Sex: Male

DRUGS (4)
  1. PANITUMUMAB [Suspect]
     Indication: OESOPHAGEAL CARCINOMA
     Dosage: UNK
     Dates: start: 20101002
  2. EPIRUBICIN [Suspect]
     Dosage: UNK
     Dates: start: 20101002
  3. OXALIPLATIN [Suspect]
     Dosage: UNK
     Dates: start: 20101002
  4. CAPECITABINE [Suspect]
     Dosage: UNK
     Dates: start: 20101002, end: 20101102

REACTIONS (4)
  - HAEMOGLOBIN DECREASED [None]
  - HEART RATE INCREASED [None]
  - JAUNDICE [None]
  - NEUTROPENIC SEPSIS [None]
